FAERS Safety Report 20746136 (Version 1)
Quarter: 2022Q2

REPORT INFORMATION
  Report Type: Spontaneous
  Country: US (occurrence: US)
  Receive Date: 20220425
  Receipt Date: 20220425
  Transmission Date: 20220721
  Serious: No
  Sender: FDA-Public Use
  Company Number: US-MIRM-000339

PATIENT
  Age: 3 Year
  Sex: Male

DRUGS (4)
  1. LIVMARLI [Suspect]
     Active Substance: MARALIXIBAT CHLORIDE
     Indication: Alagille syndrome
     Route: 048
     Dates: start: 20220303
  2. LIVMARLI [Suspect]
     Active Substance: MARALIXIBAT CHLORIDE
     Indication: Alagille syndrome
     Route: 048
  3. 1325420 (GLOBALC3Sep19): Cholestyramine [Concomitant]
     Indication: Product used for unknown indication
  4. 1328777 (GLOBALC3Sep19): Ursodiol [Concomitant]
     Indication: Product used for unknown indication

REACTIONS (1)
  - Faeces discoloured [Unknown]

NARRATIVE: CASE EVENT DATE: 20220303
